FAERS Safety Report 6109671-5 (Version None)
Quarter: 2009Q1

REPORT INFORMATION
  Report Type: 
  Country: None (occurrence: None)
  Receive Date: 20090310
  Receipt Date: 20080211
  Transmission Date: 20090719
  Serious: No
  Sender: FDA-Public Use
  Company Number: A0708522A

PATIENT
  Age: 42 Year
  Sex: Male

DRUGS (1)
  1. NICORETTE [Suspect]
     Dates: start: 20080202, end: 20080202

REACTIONS (2)
  - MALAISE [None]
  - NAUSEA [None]
